FAERS Safety Report 24553974 (Version 1)
Quarter: 2024Q4

REPORT INFORMATION
  Report Type: Spontaneous
  Country: GB (occurrence: GB)
  Receive Date: 20241028
  Receipt Date: 20241028
  Transmission Date: 20250114
  Serious: Yes (Other)
  Sender: DEXCEL
  Company Number: None

PATIENT
  Age: 1 Day
  Sex: Male
  Weight: 0 kg

DRUGS (1)
  1. CHLORHEXIDINE [Suspect]
     Active Substance: CHLORHEXIDINE
     Indication: Infection prophylaxis
     Dates: start: 20240819, end: 20240820

REACTIONS (1)
  - Chemical burn [Recovering/Resolving]

NARRATIVE: CASE EVENT DATE: 20240820
